FAERS Safety Report 18775281 (Version 1)
Quarter: 2021Q1

REPORT INFORMATION
  Report Type: Report from Study
  Country: US (occurrence: US)
  Receive Date: 20210122
  Receipt Date: 20210122
  Transmission Date: 20210419
  Serious: Yes (Hospitalization, Other)
  Sender: FDA-Public Use
  Company Number: US-EMD SERONO-9214141

PATIENT
  Age: 33 Year
  Sex: Female

DRUGS (3)
  1. MAVENCLAD [Suspect]
     Active Substance: CLADRIBINE
     Dosage: FIRST YEAR SECOND CYCLE THERAPY: TWO TABLETS ON DAY ONE AND ONE TABLET ON REMAINING DAYS.
     Route: 048
     Dates: end: 201906
  2. MAVENCLAD [Suspect]
     Active Substance: CLADRIBINE
     Dosage: SECOND YEAR FIRST CYCLE THERAPY
     Route: 048
     Dates: start: 202009
  3. MAVENCLAD [Suspect]
     Active Substance: CLADRIBINE
     Indication: RELAPSING-REMITTING MULTIPLE SCLEROSIS
     Dosage: FIRST YEAR FIRST CYCLE THERAPY: TWO TABLETS ON DAY ONE AND ONE TABLET ON REMAINING DAYS.
     Route: 048
     Dates: start: 20190515

REACTIONS (3)
  - Cerebral atrophy [Unknown]
  - Multiple sclerosis relapse [Unknown]
  - Stress [Unknown]

NARRATIVE: CASE EVENT DATE: 202009
